FAERS Safety Report 19793136 (Version 8)
Quarter: 2022Q3

REPORT INFORMATION
  Report Type: Other
  Country: CA (occurrence: None)
  Receive Date: 20210906
  Receipt Date: 20220921
  Transmission Date: 20221027
  Serious: Yes (Other)
  Sender: FDA-Public Use
  Company Number: CA-ROCHE-2402205

PATIENT
  Age: 37 Year
  Sex: Female
  Weight: 69.008 kg

DRUGS (6)
  1. OCREVUS [Suspect]
     Active Substance: OCRELIZUMAB
     Indication: Relapsing-remitting multiple sclerosis
     Dosage: 300 MG AT DAY 0 AND 14, THEN 600 MG EVERY 6 MONTH ;ONGOING: YES?DATE RECEIVED TREATMENT WITH OCRELIZ
     Route: 042
     Dates: start: 20180427
  2. ASPIRIN [Concomitant]
     Active Substance: ASPIRIN
  3. ALBUTEROL [Concomitant]
     Active Substance: ALBUTEROL
  4. CETIRIZINE HYDROCHLORIDE [Concomitant]
     Active Substance: CETIRIZINE HYDROCHLORIDE
  5. DALFAMPRIDINE [Concomitant]
     Active Substance: DALFAMPRIDINE
  6. COVID-19 VACCINE [Concomitant]
     Dosage: 3RD BOOSTER 26/DEC

REACTIONS (4)
  - Mastitis [Recovered/Resolved]
  - Maternal exposure during pregnancy [Unknown]
  - Urinary tract infection [Recovering/Resolving]
  - Urinary tract infection [Recovered/Resolved]

NARRATIVE: CASE EVENT DATE: 20210811
